FAERS Safety Report 18579296 (Version 4)
Quarter: 2020Q4

REPORT INFORMATION
  Report Type: Spontaneous
  Country: JP (occurrence: JP)
  Receive Date: 20201204
  Receipt Date: 20201229
  Transmission Date: 20210114
  Serious: Yes (Hospitalization, Other)
  Sender: FDA-Public Use
  Company Number: JP-PFIZER INC-2020470264

PATIENT
  Age: 87 Year
  Sex: Female
  Weight: 42 kg

DRUGS (21)
  1. DONEPEZIL HYDROCHLORIDE. [Suspect]
     Active Substance: DONEPEZIL HYDROCHLORIDE
  2. MAGNESIUM/MAGNESIUM HYDROXIDE/MAGNESIUM OXIDE [Suspect]
     Active Substance: MAGNESIUM
  3. ELIQUIS [Suspect]
     Active Substance: APIXABAN
     Route: 065
  4. AMLODIPINE BESILATE [Suspect]
     Active Substance: AMLODIPINE BESYLATE
     Dosage: UNK
  5. ENALAPRIL MALEATE. [Suspect]
     Active Substance: ENALAPRIL MALEATE
  6. OLOPATADINE HYDROCHLORIDE. [Suspect]
     Active Substance: OLOPATADINE HYDROCHLORIDE
  7. CELECOXIB. [Suspect]
     Active Substance: CELECOXIB
  8. YOKUKANSAN [Suspect]
     Active Substance: HERBALS
  9. URAPIDIL [Suspect]
     Active Substance: URAPIDIL
  10. IMIDAFENACIN [Suspect]
     Active Substance: IMIDAFENACIN
  11. PL [Suspect]
     Active Substance: ACETAMINOPHEN\CAFFEINE\PROMETHAZINE\SALICYLAMIDE
  12. ETIZOLAM [Suspect]
     Active Substance: ETIZOLAM
  13. PREGABALIN. [Suspect]
     Active Substance: PREGABALIN
  14. LANSOPRAZOLE. [Suspect]
     Active Substance: LANSOPRAZOLE
  15. TRAMADOL/ACETAMINOPHEN [Suspect]
     Active Substance: ACETAMINOPHEN\TRAMADOL
  16. FUROSEMIDE. [Suspect]
     Active Substance: FUROSEMIDE
  17. KAKKONTO SISEI [Suspect]
     Active Substance: HERBALS
  18. METOCLOPRAMIDE. [Suspect]
     Active Substance: METOCLOPRAMIDE
  19. CLOTIAZEPAM [Suspect]
     Active Substance: CLOTIAZEPAM
     Dosage: UNK
  20. RISEDRONIC ACID [Suspect]
     Active Substance: RISEDRONIC ACID
  21. EPERISONE [Suspect]
     Active Substance: EPERISONE

REACTIONS (6)
  - Hypokalaemia [Unknown]
  - Dizziness [Unknown]
  - Nausea [Unknown]
  - Urinary retention [Unknown]
  - Vomiting [Unknown]
  - Malaise [Unknown]
